FAERS Safety Report 5797582-4 (Version None)
Quarter: 2008Q2

REPORT INFORMATION
  Report Type: 
  Country: None (occurrence: None)
  Receive Date: 20080618
  Receipt Date: 20070316
  Transmission Date: 20081010
  Serious: Yes (Other)
  Sender: FDA-Public Use
  Company Number: 200515637US

PATIENT
  Age: 46 Year
  Sex: Female

DRUGS (5)
  1. LANTUS [Suspect]
     Indication: TYPE 1 DIABETES MELLITUS
     Dosage: INJ
     Route: 042
     Dates: start: 20050623
  2. LANTUS [Suspect]
     Indication: TYPE 1 DIABETES MELLITUS
     Dosage: 8 U INJ
     Route: 042
  3. LANTUS [Suspect]
     Indication: TYPE 1 DIABETES MELLITUS
     Dosage: 10 U HS
  4. OPTICLIK [Suspect]
     Indication: TYPE 1 DIABETES MELLITUS
     Dosage: 8 U INJ
     Route: 042
  5. HUMALOG [Concomitant]

REACTIONS (5)
  - ASTHENIA [None]
  - BLOOD GLUCOSE INCREASED [None]
  - HYPERGLYCAEMIA [None]
  - MALAISE [None]
  - SPEECH DISORDER [None]
